FAERS Safety Report 6663783-6 (Version None)
Quarter: 2010Q1

REPORT INFORMATION
  Report Type: 
  Country: None (occurrence: None)
  Receive Date: 20100331
  Receipt Date: 20100331
  Transmission Date: 20100710
  Serious: Yes (Hospitalization, Other)
  Sender: FDA-Public Use
  Company Number: None

PATIENT
  Age: 59 Year
  Sex: Female
  Weight: 35 kg

DRUGS (25)
  1. SIROLIMUS 1MG WYETH [Suspect]
     Indication: HEART TRANSPLANT
     Dosage: 2MG DAILY PO
     Route: 048
  2. AMLODIPINE [Concomitant]
  3. EZETIMIBE [Concomitant]
  4. ACETAZOLAMIDE SR [Concomitant]
  5. MYCOPHENOLATE MOEFETIL [Concomitant]
  6. PANTOPRAZOLE [Concomitant]
  7. LEVOTHYROXINE SODIUM [Concomitant]
  8. FENOFIBRATE [Concomitant]
  9. GABAPENTIN [Concomitant]
  10. BUSPIRONE HCL [Concomitant]
  11. LISINOPRIL [Concomitant]
  12. SIMVASTATIN [Concomitant]
  13. PAROXETINE HCL [Concomitant]
  14. OSCAL + D [Concomitant]
  15. ASPIRIN [Concomitant]
  16. MULTI-VITAMIN [Concomitant]
  17. ALPRAZOLAM [Concomitant]
  18. ACETAMINOPHEN [Concomitant]
  19. CYCLOBENZAPRINE [Concomitant]
  20. PROPOXYPHENE HCL AND ACETAMINOPHEN [Concomitant]
  21. MULTIVITAMIN [Concomitant]
  22. SMX/TMP [Concomitant]
  23. CEFDINIR [Concomitant]
  24. MEDROL [Concomitant]
  25. AZITHROMYCIN [Concomitant]

REACTIONS (11)
  - ABDOMINAL PAIN UPPER [None]
  - CANDIDIASIS [None]
  - DECREASED APPETITE [None]
  - DEHYDRATION [None]
  - DIARRHOEA [None]
  - HEADACHE [None]
  - LUNG INFILTRATION [None]
  - OLIGURIA [None]
  - PULMONARY TOXICITY [None]
  - RESPIRATORY FAILURE [None]
  - VOMITING [None]
